FAERS Safety Report 4463289-9 (Version None)
Quarter: 2004Q3

REPORT INFORMATION
  Report Type: 
  Country: None (occurrence: None)
  Receive Date: 20040930
  Receipt Date: 20040702
  Transmission Date: 20050211
  Serious: No
  Sender: FDA-Public Use
  Company Number: US-BRISTOL-MYERS SQUIBB COMPANY-12633475

PATIENT

DRUGS (4)
  1. REYATAZ [Suspect]
     Indication: HIV INFECTION
  2. VIREAD [Concomitant]
     Indication: HIV INFECTION
  3. PROTEASE INHIBITOR [Concomitant]
     Indication: HIV INFECTION
  4. ANDROGEL [Concomitant]
     Route: 061

REACTIONS (3)
  - BLOOD TESTOSTERONE DECREASED [None]
  - OSTEOPOROSIS [None]
  - POLYCYTHAEMIA [None]
